FAERS Safety Report 23000599 (Version 3)
Quarter: 2023Q4

REPORT INFORMATION
  Report Type: Spontaneous
  Country: US (occurrence: US)
  Receive Date: 20230928
  Receipt Date: 20231227
  Transmission Date: 20240110
  Serious: No
  Sender: FDA-Public Use
  Company Number: US-PFIZER INC-202201001782

PATIENT
  Age: 7 Year
  Sex: Male

DRUGS (2)
  1. GENOTROPIN [Suspect]
     Active Substance: SOMATROPIN
     Indication: Growth hormone deficiency
     Dosage: 0.06 MG, DAILY
  2. GENOTROPIN [Suspect]
     Active Substance: SOMATROPIN
     Dosage: 0.07 MG, DAILY

REACTIONS (6)
  - Product prescribing error [Unknown]
  - Device mechanical issue [Unknown]
  - Poor quality device used [Unknown]
  - Drug dose omission by device [Unknown]
  - Device operational issue [Unknown]
  - Device delivery system issue [Unknown]
